FAERS Safety Report 10602474 (Version 3)
Quarter: 2015Q1

REPORT INFORMATION
  Report Type: Spontaneous
  Country: US (occurrence: US)
  Receive Date: 20141124
  Receipt Date: 20150211
  Transmission Date: 20150720
  Serious: Yes (Other)
  Sender: FDA-Public Use
  Company Number: US-GLAXOSMITHKLINE-A1090838A

PATIENT

DRUGS (1)
  1. ABREVA [Suspect]
     Active Substance: DOCOSANOL
     Indication: ORAL HERPES
     Route: 061

REACTIONS (6)
  - Squamous cell carcinoma [Recovered/Resolved]
  - Lip disorder [Not Recovered/Not Resolved]
  - Application site exfoliation [Not Recovered/Not Resolved]
  - Drug administration error [Unknown]
  - Application site burn [Not Recovered/Not Resolved]
  - Impaired healing [Not Recovered/Not Resolved]
